FAERS Safety Report 6032101-9 (Version None)
Quarter: 2009Q1

REPORT INFORMATION
  Report Type: 
  Country: None (occurrence: None)
  Receive Date: 20090107
  Receipt Date: 20081223
  Transmission Date: 20090719
  Serious: Yes (Other)
  Sender: FDA-Public Use
  Company Number: 2008S1012494

PATIENT
  Age: 79 Year
  Sex: Female

DRUGS (11)
  1. ENEMA CASEN (FLEET ENEMA) [Suspect]
     Dosage: 250 ML RTL
     Route: 054
  2. METFORMIN HCL [Concomitant]
  3. INSULIN (INSULIN) [Concomitant]
  4. INDAPAMIDE [Concomitant]
  5. AMLODIPINE [Concomitant]
  6. SERTRALINE [Concomitant]
  7. OMEPRAZOLE [Concomitant]
  8. TRAMADOL HCL [Concomitant]
  9. ACETAMINOPHEN [Concomitant]
  10. RISEDRONATE SODIUM [Concomitant]
  11. FERROUS SULFATE TAB [Concomitant]

REACTIONS (4)
  - DEPRESSED LEVEL OF CONSCIOUSNESS [None]
  - HAEMODIALYSIS [None]
  - HYPERPHOSPHATAEMIA [None]
  - TETANY [None]
